FAERS Safety Report 22041779 (Version 1)
Quarter: 2023Q1

REPORT INFORMATION
  Report Type: Spontaneous
  Country: US (occurrence: US)
  Receive Date: 20230227
  Receipt Date: 20230227
  Transmission Date: 20230417
  Serious: Yes (Other)
  Sender: FDA-Public Use
  Company Number: US-ALLERGAN-2305027US

PATIENT
  Sex: Male
  Weight: 65.77 kg

DRUGS (1)
  1. REFRESH PLUS [Suspect]
     Active Substance: CARBOXYMETHYLCELLULOSE SODIUM
     Indication: Dry eye
     Dosage: UNK UNK, BID
     Route: 047
     Dates: start: 2020

REACTIONS (3)
  - Cataract [Recovered/Resolved]
  - Blepharitis [Unknown]
  - Product storage error [Unknown]

NARRATIVE: CASE EVENT DATE: 20210201
